FAERS Safety Report 24992198 (Version 2)
Quarter: 2025Q1

REPORT INFORMATION
  Report Type: Spontaneous
  Country: JP (occurrence: JP)
  Receive Date: 20250220
  Receipt Date: 20250319
  Transmission Date: 20250409
  Serious: Yes (Hospitalization, Other)
  Sender: MERCK SHARP & DOHME LLC
  Company Number: JP-MSD-M2024-56191

PATIENT
  Age: 79 Year
  Sex: Male

DRUGS (1)
  1. LAGEVRIO [Suspect]
     Active Substance: MOLNUPIRAVIR
     Indication: COVID-19
     Dosage: DOSE DESCRIPTION : 800 MILLIGRAM, BID?DAILY DOSE : 1600 MILLIGRAM
     Route: 048
     Dates: start: 20241223, end: 20241227

REACTIONS (3)
  - Respiratory disorder [Recovered/Resolved]
  - Prescribed underdose [Unknown]
  - Pneumonia bacterial [Unknown]

NARRATIVE: CASE EVENT DATE: 20241201
